FAERS Safety Report 9063293 (Version 1)
Quarter: 2013Q1

REPORT INFORMATION
  Report Type: Report from Study
  Country: US (occurrence: US)
  Receive Date: 20130128
  Receipt Date: 20130128
  Transmission Date: 20140127
  Serious: No
  Sender: FDA-Public Use
  Company Number: US-ABBOTT-12P-163-0890285-00

PATIENT
  Age: 68 Year
  Sex: Female

DRUGS (11)
  1. HUMIRA 40 MG/0.8 ML PEN [Suspect]
     Indication: RHEUMATOID ARTHRITIS
     Dates: start: 201108
  2. ADVAIR [Concomitant]
     Indication: PRODUCT USED FOR UNKNOWN INDICATION
  3. DHEA ADVANCED [Concomitant]
     Indication: SUPPLEMENTATION THERAPY
  4. ESTRASORB [Concomitant]
     Indication: MENOPAUSE
  5. ESTRING [Concomitant]
     Indication: HORMONE REPLACEMENT THERAPY
  6. HYDROXYCHLOROQUINE [Concomitant]
     Indication: RHEUMATOID ARTHRITIS
  7. METHOTREXATE [Concomitant]
     Indication: RHEUMATOID ARTHRITIS
  8. TESTOCYP [Concomitant]
     Indication: HORMONE REPLACEMENT THERAPY
  9. VITAMIN B [Concomitant]
     Indication: SUPPLEMENTATION THERAPY
  10. ZYRTEC [Concomitant]
     Indication: HYPERSENSITIVITY
  11. LEVOTHYROID [Concomitant]
     Indication: THYROID DISORDER

REACTIONS (1)
  - Infection [Recovered/Resolved]
